FAERS Safety Report 16346865 (Version 1)
Quarter: 2019Q2

REPORT INFORMATION
  Report Type: Spontaneous
  Country: None (occurrence: US)
  Receive Date: 20190523
  Receipt Date: 20190523
  Transmission Date: 20190711
  Serious: Yes (Hospitalization)
  Sender: FDA-Public Use
  Company Number: US-JIANGSU HENGRUI MEDICINE CO., LTD.-2067346

PATIENT
  Age: 46 Year
  Sex: Female

DRUGS (18)
  1. ZETIA [Concomitant]
     Active Substance: EZETIMIBE
  2. GLUCOPHAGE [Concomitant]
     Active Substance: METFORMIN HYDROCHLORIDE
  3. PONATINIB [Suspect]
     Active Substance: PONATINIB
  4. VINCRISTINE [Suspect]
     Active Substance: VINCRISTINE
  5. ZYLOPRIM [Concomitant]
     Active Substance: ALLOPURINOL
  6. LEVAQUIN [Concomitant]
     Active Substance: LEVOFLOXACIN
  7. VFEND [Concomitant]
     Active Substance: VORICONAZOLE
  8. CYCLOPHOSPHAMIDE FOR INJECTION USP, 500 MG, 1 G AND 2 G PER SINGLE-DOS [Suspect]
     Active Substance: CYCLOPHOSPHAMIDE
     Indication: ACUTE LYMPHOCYTIC LEUKAEMIA
     Route: 065
  9. AMARYL [Concomitant]
     Active Substance: GLIMEPIRIDE
  10. COMPAZINE [Concomitant]
     Active Substance: PROCHLORPERAZINE MALEATE
  11. VALTREX [Concomitant]
     Active Substance: VALACYCLOVIR HYDROCHLORIDE
  12. ZESTRIL [Concomitant]
     Active Substance: LISINOPRIL
  13. MIRALAX [Concomitant]
     Active Substance: POLYETHYLENE GLYCOL 3350
  14. SENOKOT-S [Concomitant]
     Active Substance: DOCUSATE SODIUM\SENNOSIDES
  15. DOXORUBICIN [Suspect]
     Active Substance: DOXORUBICIN
  16. DEXAMETHASONE. [Suspect]
     Active Substance: DEXAMETHASONE
  17. LIPITOR ORIFARM [Concomitant]
     Active Substance: ATORVASTATIN CALCIUM
  18. HUMALOG [Concomitant]
     Active Substance: INSULIN LISPRO

REACTIONS (1)
  - Febrile neutropenia [Not Recovered/Not Resolved]

NARRATIVE: CASE EVENT DATE: 20190411
